FAERS Safety Report 8181409-X (Version None)
Quarter: 2012Q1

REPORT INFORMATION
  Report Type: 
  Country: None (occurrence: None)
  Receive Date: 20120302
  Receipt Date: 20120223
  Transmission Date: 20120608
  Serious: Yes (Hospitalization)
  Sender: FDA-Public Use
  Company Number: US-ABBOTT-12P-163-0908635-01

PATIENT
  Sex: Female
  Weight: 108.05 kg

DRUGS (7)
  1. HUMIRA [Suspect]
     Route: 058
  2. ASPIRIN [Concomitant]
     Indication: TRANSIENT ISCHAEMIC ATTACK
     Dates: start: 20081110
  3. CILOSTAZOL [Concomitant]
     Indication: TRANSIENT ISCHAEMIC ATTACK
     Dates: start: 20110201
  4. HUMIRA [Suspect]
     Route: 058
     Dates: start: 20100416
  5. PLAVIX [Concomitant]
     Indication: TRANSIENT ISCHAEMIC ATTACK
     Dates: start: 20081110
  6. METHOTREXATE [Concomitant]
     Indication: PSORIASIS
     Dates: start: 19990701
  7. HUMIRA [Suspect]
     Indication: PSORIASIS
     Route: 058
     Dates: start: 20071025, end: 20071025

REACTIONS (1)
  - TRANSIENT ISCHAEMIC ATTACK [None]
